FAERS Safety Report 5635314-0 (Version None)
Quarter: 2008Q1

REPORT INFORMATION
  Report Type: 
  Country: None (occurrence: None)
  Receive Date: 20080131
  Receipt Date: 20071011
  Transmission Date: 20080703
  Serious: No
  Sender: FDA-Public Use
  Company Number: 163-21880-07100677

PATIENT
  Age: 70 Year
  Sex: Female
  Weight: 48.0813 kg

DRUGS (13)
  1. REVLIMID [Suspect]
     Indication: MULTIPLE MYELOMA
     Dosage: 25 MG, DAILY FOR 21 DAYS, ORAL
     Route: 048
     Dates: start: 20070424, end: 20071001
  2. LASIX [Concomitant]
  3. NYSTATIN [Concomitant]
  4. PROTONIX [Concomitant]
  5. ALTACE [Concomitant]
  6. COREG [Concomitant]
  7. LORTAB [Concomitant]
  8. CELEXA [Concomitant]
  9. POTASSIUM (POTASSIUM) [Concomitant]
  10. ASCORBIC ACID [Concomitant]
  11. MULTIVITAMIN [Concomitant]
  12. METAMUCIL (PSYLLIUM) [Concomitant]
  13. DEXAMETHASONE TAB [Concomitant]

REACTIONS (5)
  - DIARRHOEA [None]
  - GINGIVITIS [None]
  - HEADACHE [None]
  - MUSCLE SPASMS [None]
  - STOMATITIS [None]
